FAERS Safety Report 13521011 (Version 1)
Quarter: 2017Q2

REPORT INFORMATION
  Report Type: Spontaneous
  Country: US (occurrence: US)
  Receive Date: 20170508
  Receipt Date: 20170508
  Transmission Date: 20170830
  Serious: No
  Sender: FDA-Public Use
  Company Number: US-TEVA-761427ACC

PATIENT
  Age: 56 Year
  Sex: Female

DRUGS (6)
  1. OMEPRAZOLE. [Concomitant]
     Active Substance: OMEPRAZOLE
  2. LEVOTHYROXINE. [Concomitant]
     Active Substance: LEVOTHYROXINE
  3. BUPROPION. [Concomitant]
     Active Substance: BUPROPION
  4. SIMVASTATIN. [Concomitant]
     Active Substance: SIMVASTATIN
  5. FAMOTIDINE. [Concomitant]
     Active Substance: FAMOTIDINE
  6. COPAXONE [Suspect]
     Active Substance: GLATIRAMER ACETATE
     Indication: MULTIPLE SCLEROSIS
     Route: 058
     Dates: start: 20140924

REACTIONS (1)
  - Motor dysfunction [Not Recovered/Not Resolved]
